FAERS Safety Report 10147144 (Version 1)
Quarter: 2014Q2

REPORT INFORMATION
  Report Type: Report from Study
  Country: US (occurrence: US)
  Receive Date: 20140501
  Receipt Date: 20140501
  Transmission Date: 20141212
  Serious: Yes (Other)
  Sender: FDA-Public Use
  Company Number: US-PURDUE-USA-2014-0113406

PATIENT
  Age: 67 Year
  Sex: Female

DRUGS (2)
  1. OXY CR TAB [Suspect]
     Indication: RHEUMATOID ARTHRITIS
     Dosage: 160 MG, BID
  2. OXY CR TAB [Suspect]
     Indication: PAIN

REACTIONS (3)
  - Rotator cuff syndrome [Unknown]
  - Fall [Unknown]
  - Joint swelling [Unknown]
